FAERS Safety Report 23761177 (Version 1)
Quarter: 2024Q2

REPORT INFORMATION
  Report Type: Spontaneous
  Country: US (occurrence: US)
  Receive Date: 20240419
  Receipt Date: 20240419
  Transmission Date: 20240716
  Serious: No
  Sender: FDA-Public Use
  Company Number: US-ARBOR PHARMACEUTICALS, LLC-US-2024ARB000069

PATIENT
  Sex: Female

DRUGS (4)
  1. HORIZANT [Suspect]
     Active Substance: GABAPENTIN ENACARBIL
     Indication: Neuropathy peripheral
     Dosage: 600 MG, BID (600MG IN THE MORNING AND 600MG IN THE EVENING)
     Route: 065
     Dates: end: 202305
  2. HORIZANT [Suspect]
     Active Substance: GABAPENTIN ENACARBIL
     Dosage: QD (600 MG IN THE MORNING)
     Route: 065
     Dates: start: 202305, end: 202309
  3. HORIZANT [Suspect]
     Active Substance: GABAPENTIN ENACARBIL
     Dosage: QD (300 MG IN THE EVENING)
     Route: 065
     Dates: start: 202305, end: 202309
  4. HORIZANT [Suspect]
     Active Substance: GABAPENTIN ENACARBIL
     Dosage: 600 MG, QD, (IN THE MORNING)
     Route: 065
     Dates: start: 202309

REACTIONS (4)
  - Abnormal dreams [Not Recovered/Not Resolved]
  - Sleep disorder [Not Recovered/Not Resolved]
  - Affect lability [Not Recovered/Not Resolved]
  - Headache [Recovered/Resolved]

NARRATIVE: CASE EVENT DATE: 20230101
